FAERS Safety Report 6709061-8 (Version None)
Quarter: 2010Q2

REPORT INFORMATION
  Report Type: 
  Country: None (occurrence: None)
  Receive Date: 20100430
  Receipt Date: 20100430
  Transmission Date: 20101027
  Serious: Yes (Hospitalization)
  Sender: FDA-Public Use
  Company Number: None

PATIENT
  Age: 31 Year
  Sex: Female
  Weight: 84.4 kg

DRUGS (1)
  1. VENLAFAXINE [Suspect]
     Indication: DEPRESSION
     Dosage: 25 MG DAILY ORAL 047

REACTIONS (7)
  - ARTHRALGIA [None]
  - COAGULOPATHY [None]
  - ENCEPHALOPATHY [None]
  - HEADACHE [None]
  - JAUNDICE [None]
  - MALAISE [None]
  - NAUSEA [None]
